FAERS Safety Report 9633231 (Version 1)
Quarter: 2013Q4

REPORT INFORMATION
  Report Type: Spontaneous
  Country: US (occurrence: None)
  Receive Date: 20131018
  Receipt Date: 20131018
  Transmission Date: 20140711
  Serious: No
  Sender: FDA-Public Use
  Company Number: None

PATIENT
  Age: 23 Year
  Sex: Female
  Weight: 58.97 kg

DRUGS (1)
  1. ESCITALOPRAM [Suspect]
     Dosage: 1 PILL
     Route: 048
     Dates: start: 20131006, end: 20131017

REACTIONS (6)
  - Product substitution issue [None]
  - Panic attack [None]
  - Anxiety [None]
  - Insomnia [None]
  - Headache [None]
  - Abdominal pain upper [None]
